FAERS Safety Report 4884864-3 (Version None)
Quarter: 2006Q1

REPORT INFORMATION
  Report Type: 
  Country: None (occurrence: None)
  Receive Date: 20060119
  Receipt Date: 20051228
  Transmission Date: 20060701
  Serious: Yes (Hospitalization)
  Sender: FDA-Public Use
  Company Number: FR-GLAXOSMITHKLINE-B0405381A

PATIENT
  Age: 51 Year
  Sex: Female
  Weight: 76 kg

DRUGS (8)
  1. CLAVENTIN [Suspect]
     Indication: OSTEITIS
     Dosage: 3G THREE TIMES PER DAY
     Route: 042
     Dates: start: 20051010, end: 20051107
  2. FRAXIPARINE [Suspect]
     Indication: OSTEITIS
     Dosage: 1INJ PER DAY
     Route: 058
     Dates: start: 20051010, end: 20051104
  3. PLAVIX [Suspect]
     Dosage: 3G THREE TIMES PER DAY
     Route: 048
     Dates: start: 20050901, end: 20051104
  4. EFFERALGAN CODEINE [Concomitant]
     Route: 048
     Dates: end: 20051107
  5. LANTUS [Concomitant]
  6. KARDEGIC [Concomitant]
  7. DIFFU K [Concomitant]
  8. TOPALGIC ( FRANCE ) [Concomitant]

REACTIONS (2)
  - EOSINOPHILIA [None]
  - NEUTROPENIA [None]
